FAERS Safety Report 18692340 (Version 1)
Quarter: 2021Q1

REPORT INFORMATION
  Report Type: Spontaneous
  Country: US (occurrence: US)
  Receive Date: 20210103
  Receipt Date: 20210103
  Transmission Date: 20210419
  Serious: No
  Sender: FDA-Public Use
  Company Number: US-SPECGX-T202002011

PATIENT
  Age: 49 Year
  Sex: Female

DRUGS (4)
  1. BUPRENORPHINE/NALOXONE [Suspect]
     Active Substance: BUPRENORPHINE\NALOXONE
     Indication: DRUG USE DISORDER
     Dosage: UNK, ONCE A DAY
     Route: 065
     Dates: start: 202009
  2. BUPRENORPHINE/NALOXONE [Suspect]
     Active Substance: BUPRENORPHINE\NALOXONE
     Indication: DRUG USE DISORDER
     Dosage: UNK, 12 MG
     Route: 065
  3. LUNESTA [Concomitant]
     Active Substance: ESZOPICLONE
     Indication: INSOMNIA
     Dosage: 1 MILLIGRAM, QHS
     Route: 048
  4. ATIVAN [Concomitant]
     Active Substance: LORAZEPAM
     Indication: ANXIETY
     Dosage: 1 MILLIGRAM, PRN
     Route: 048

REACTIONS (2)
  - Slow speech [Unknown]
  - Euphoric mood [Unknown]

NARRATIVE: CASE EVENT DATE: 202009
